FAERS Safety Report 16362212 (Version 1)
Quarter: 2019Q2

REPORT INFORMATION
  Report Type: Spontaneous
  Country: ES (occurrence: ES)
  Receive Date: 20190528
  Receipt Date: 20190528
  Transmission Date: 20190711
  Serious: Yes (Other)
  Sender: FDA-Public Use
  Company Number: ES-SA-2019SA140861

PATIENT
  Age: 68 Year
  Sex: Male
  Weight: 69 kg

DRUGS (3)
  1. OMNIC OCA [Suspect]
     Active Substance: TAMSULOSIN HYDROCHLORIDE
     Indication: BENIGN PROSTATIC HYPERPLASIA
     Dosage: 0.4 MG, QD
     Route: 048
     Dates: start: 20181206, end: 20181207
  2. NAPROXENO NORMON [Concomitant]
     Dosage: 500 MG
     Dates: start: 20180910
  3. ENALAPRIL + HIDROCLOROTIAZIDA [Concomitant]
     Active Substance: ENALAPRIL MALEATE\HYDROCHLOROTHIAZIDE
     Dosage: UNK
     Dates: start: 20170904

REACTIONS (4)
  - Dizziness [Recovering/Resolving]
  - Hypotension [Recovering/Resolving]
  - Palpitations [Recovering/Resolving]
  - Headache [Recovering/Resolving]

NARRATIVE: CASE EVENT DATE: 20181207
